FAERS Safety Report 11852179 (Version 1)
Quarter: 2015Q4

REPORT INFORMATION
  Report Type: Report from Study
  Country: EC (occurrence: EC)
  Receive Date: 20151218
  Receipt Date: 20151218
  Transmission Date: 20160305
  Serious: Yes (Death, Hospitalization, Other)
  Sender: FDA-Public Use
  Company Number: PHHY2015EC136804

PATIENT
  Age: 27 Year
  Sex: Female

DRUGS (1)
  1. TASIGNA [Suspect]
     Active Substance: NILOTINIB
     Indication: CHRONIC MYELOID LEUKAEMIA
     Dosage: 200 MG, BID
     Route: 048
     Dates: start: 20150717, end: 20151014

REACTIONS (4)
  - Bone marrow failure [Unknown]
  - Infection [Unknown]
  - Drug ineffective [Unknown]
  - Sepsis [Fatal]

NARRATIVE: CASE EVENT DATE: 20151014
